FAERS Safety Report 9539155 (Version 1)
Quarter: 2013Q3

REPORT INFORMATION
  Report Type: Spontaneous
  Country: US (occurrence: None)
  Receive Date: 20130917
  Receipt Date: 20130917
  Transmission Date: 20140515
  Serious: Yes (Other)
  Sender: FDA-Public Use
  Company Number: 2013P1019207

PATIENT
  Age: 57 Year
  Sex: Female

DRUGS (2)
  1. REGLAN [Suspect]
  2. OXYCODONE [Concomitant]

REACTIONS (1)
  - Drug effect decreased [None]
